FAERS Safety Report 7164222-1 (Version None)
Quarter: 2010Q4

REPORT INFORMATION
  Report Type: 
  Country: None (occurrence: None)
  Receive Date: 20101215
  Receipt Date: 20101210
  Transmission Date: 20110411
  Serious: Yes (Other)
  Sender: FDA-Public Use
  Company Number: GR-PFIZER INC-2010162106

PATIENT
  Sex: Male

DRUGS (2)
  1. LIPITOR [Suspect]
     Dosage: 20 MG, ALTERNATE DAY
  2. ZOCOR [Suspect]
     Dosage: UNK

REACTIONS (3)
  - BACK PAIN [None]
  - MYALGIA [None]
  - PANCREATITIS [None]
